FAERS Safety Report 14835229 (Version 2)
Quarter: 2018Q2

REPORT INFORMATION
  Report Type: Report from Study
  Country: JP (occurrence: JP)
  Receive Date: 20180502
  Receipt Date: 20180528
  Transmission Date: 20180711
  Serious: Yes (Hospitalization, Other)
  Sender: FDA-Public Use
  Company Number: JP-ROCHE-2114615

PATIENT

DRUGS (1)
  1. RITUXIMAB. [Suspect]
     Active Substance: RITUXIMAB
     Indication: ANTI-NEUTROPHIL CYTOPLASMIC ANTIBODY POSITIVE VASCULITIS
     Dosage: DOSE: 10MG/ML (RITUXIMAB (GENETICAL RECOMBINATION)
     Route: 041

REACTIONS (5)
  - Pneumonia [Unknown]
  - Cardiac failure [Recovered/Resolved with Sequelae]
  - Bronchitis [Recovered/Resolved]
  - Depression [Unknown]
  - Cytomegalovirus test positive [Recovered/Resolved]
